FAERS Safety Report 26156977 (Version 1)
Quarter: 2025Q4

REPORT INFORMATION
  Report Type: Spontaneous
  Country: CN (occurrence: CN)
  Receive Date: 20251215
  Receipt Date: 20251215
  Transmission Date: 20260118
  Serious: Yes (Other)
  Sender: MYLAN
  Company Number: CN-MYLANLABS-2025M1105469

PATIENT
  Age: 26 Year
  Sex: Female
  Weight: 52 kg

DRUGS (2)
  1. CELEBREX [Suspect]
     Active Substance: CELECOXIB
     Indication: Muscle contusion
     Dosage: 2 DOSAGE FORM, QD
     Route: 061
     Dates: start: 20251112, end: 20251121
  2. BACLOFEN [Concomitant]
     Active Substance: BACLOFEN
     Dosage: 1 DOSAGE FORM, QD
     Route: 061
     Dates: start: 20251112, end: 20251120

REACTIONS (4)
  - Oropharyngeal pain [Recovered/Resolved]
  - Visual acuity reduced [Not Recovered/Not Resolved]
  - Drug eruption [Recovering/Resolving]
  - Jaundice [Not Recovered/Not Resolved]

NARRATIVE: CASE EVENT DATE: 20251113
